FAERS Safety Report 8207195-2 (Version None)
Quarter: 2012Q1

REPORT INFORMATION
  Report Type: 
  Country: None (occurrence: None)
  Receive Date: 20120314
  Receipt Date: 20120308
  Transmission Date: 20120608
  Serious: No
  Sender: FDA-Public Use
  Company Number: US-PFIZER INC-2012063259

PATIENT
  Sex: Male

DRUGS (3)
  1. VISTARIL [Suspect]
     Dosage: 25 Q 8 WITH CIRCLE (EVERY 8 HOURS)
  2. METOPROLOL [Concomitant]
     Dosage: UNK
  3. BUSPAR [Concomitant]
     Dosage: UNK

REACTIONS (1)
  - CARDIAC DISORDER [None]
